FAERS Safety Report 4745112-8 (Version None)
Quarter: 2005Q3

REPORT INFORMATION
  Report Type: 
  Country: None (occurrence: None)
  Receive Date: 20050812
  Receipt Date: 20050812
  Transmission Date: 20060218
  Serious: Yes (Death)
  Sender: FDA-Public Use
  Company Number: None

PATIENT
  Age: 85 Year
  Sex: Female

DRUGS (7)
  1. DIGOXIN [Suspect]
     Dosage: 0.25 MG PO DAILY [UNKNOWN LOOKS LIKE STARTED ON MONTH PRIOR TO DEATH]
     Route: 048
  2. CYMBALTA [Concomitant]
  3. DIOVAN [Concomitant]
  4. PROCARDIA [Concomitant]
  5. GLIPIZIDE [Concomitant]
  6. LASIX [Concomitant]
  7. PLETAL [Concomitant]

REACTIONS (6)
  - ABDOMINAL PAIN [None]
  - CARDIAC ARREST [None]
  - DIARRHOEA [None]
  - LOSS OF CONSCIOUSNESS [None]
  - VENTRICULAR FIBRILLATION [None]
  - VOMITING [None]
